FAERS Safety Report 8017880-3 (Version None)
Quarter: 2012Q1

REPORT INFORMATION
  Report Type: 
  Country: None (occurrence: None)
  Receive Date: 20120103
  Receipt Date: 20111222
  Transmission Date: 20120608
  Serious: Yes (Other)
  Sender: FDA-Public Use
  Company Number: US-JNJFOC-20111104158

PATIENT
  Sex: Female
  Weight: 90.72 kg

DRUGS (6)
  1. ZOLOFT [Concomitant]
  2. REMICADE [Suspect]
     Indication: CROHN'S DISEASE
     Dosage: 2 INFUSIONS TOTAL
     Route: 042
     Dates: start: 20111010
  3. IMURAN [Concomitant]
     Indication: CROHN'S DISEASE
     Dosage: ADDED MED AT REMICADE START
  4. REMICADE [Suspect]
     Dosage: 2 INFUSIONS TOTAL
     Route: 042
     Dates: start: 20111024
  5. PREDNISONE TAB [Concomitant]
     Dosage: TAPERING DOSE
  6. FLAGYL [Concomitant]

REACTIONS (1)
  - BREAST CANCER [None]
